FAERS Safety Report 5633307-0 (Version None)
Quarter: 2008Q1

REPORT INFORMATION
  Report Type: 
  Country: None (occurrence: None)
  Receive Date: 20080221
  Receipt Date: 20080211
  Transmission Date: 20080703
  Serious: Yes (Other)
  Sender: FDA-Public Use
  Company Number: US-ROCHE-545284

PATIENT
  Age: 53 Year
  Sex: Male
  Weight: 74.8 kg

DRUGS (3)
  1. PEGASYS [Suspect]
     Indication: HEPATITIS C
     Route: 058
     Dates: start: 20070801
  2. RIBAVIRIN [Suspect]
     Indication: HEPATITIS C
     Route: 048
  3. CANNABIS [Concomitant]

REACTIONS (9)
  - CONFUSIONAL STATE [None]
  - DISSOCIATION [None]
  - DRY MOUTH [None]
  - FALL [None]
  - GLOSSODYNIA [None]
  - IRRITABILITY [None]
  - RIB FRACTURE [None]
  - SUICIDAL IDEATION [None]
  - WEIGHT DECREASED [None]
